FAERS Safety Report 9223620 (Version 3)
Quarter: 2013Q2

REPORT INFORMATION
  Report Type: Report from Study
  Country: US (occurrence: US)
  Receive Date: 20130410
  Receipt Date: 20130501
  Transmission Date: 20140414
  Serious: Yes (Other)
  Sender: FDA-Public Use
  Company Number: US-ABBOTT-13P-163-1071418-00

PATIENT
  Age: 65 Year
  Sex: Female

DRUGS (12)
  1. HUMIRA [Suspect]
     Indication: RHEUMATOID ARTHRITIS
     Dates: end: 201203
  2. HUMIRA [Suspect]
     Dates: start: 201203, end: 201211
  3. HUMIRA [Suspect]
     Dates: start: 201302
  4. MYREGETRIQ [Suspect]
     Indication: PRODUCT USED FOR UNKNOWN INDICATION
  5. FOLIC ACID [Concomitant]
     Indication: RHEUMATOID ARTHRITIS
     Dosage: DAILY
  6. LIPITOR [Concomitant]
     Indication: BLOOD CHOLESTEROL INCREASED
     Dosage: AT HOUR OF SLEEP
  7. LEVOTHYROXINE [Concomitant]
     Indication: HYPOTHYROIDISM
     Dosage: 150 MG DAILY
  8. VERAPAMIL ER [Concomitant]
     Indication: HYPERTENSION
  9. NEXIUM [Concomitant]
     Indication: GASTROOESOPHAGEAL REFLUX DISEASE
     Dosage: 40 MG DAILY
  10. PILOCARPINE [Concomitant]
     Indication: DRY MOUTH
     Dosage: 5 MG DAILY
  11. ACIDOPHILUS [Concomitant]
     Indication: GASTROINTESTINAL DISORDER
     Dosage: DAILY
  12. TRAMADOL [Concomitant]
     Indication: BACK PAIN
     Dosage: 3-4 DAILYAS NEEDED

REACTIONS (3)
  - Tendonitis [Recovered/Resolved]
  - Cystitis [Unknown]
  - Nausea [Unknown]
